FAERS Safety Report 7507126-4 (Version None)
Quarter: 2011Q2

REPORT INFORMATION
  Report Type: 
  Country: None (occurrence: None)
  Receive Date: 20110526
  Receipt Date: 20110517
  Transmission Date: 20111010
  Serious: Yes (Other)
  Sender: FDA-Public Use
  Company Number: US-PERRIGO-11US004089

PATIENT
  Sex: Male
  Weight: 117.91 kg

DRUGS (3)
  1. NICOTINE [Suspect]
     Indication: SMOKING CESSATION THERAPY
     Dosage: 4 MG, 4-10 PIECES/DAY
     Route: 002
     Dates: start: 20110101, end: 20110301
  2. NICOTINE [Suspect]
     Dosage: 4 MG, 6 TO 8 PIECES/DAY
     Route: 002
     Dates: start: 20110301
  3. SYNTHROID [Concomitant]
     Indication: THYROID DISORDER
     Dosage: 0.175 MG, QD
     Route: 048
     Dates: start: 20060501

REACTIONS (4)
  - INCORRECT DRUG ADMINISTRATION DURATION [None]
  - TYPE 2 DIABETES MELLITUS [None]
  - BLOOD GLUCOSE FLUCTUATION [None]
  - WRONG TECHNIQUE IN DRUG USAGE PROCESS [None]
